FAERS Safety Report 8904555 (Version 1)
Quarter: 2012Q4

REPORT INFORMATION
  Report Type: 
  Country: AU (occurrence: AU)
  Receive Date: 20121110
  Receipt Date: 20121110
  Transmission Date: 20130627
  Serious: Yes (Hospitalization)
  Sender: FDA-Public Use
  Company Number: AU-009507513-1211AUS002647

PATIENT
  Age: 15 Year
  Sex: Female
  Weight: 62 kg

DRUGS (12)
  1. BRIDION [Suspect]
     Indication: TONSILLECTOMY
     Dosage: 100 mg, Once
     Route: 042
     Dates: start: 20120727, end: 20120727
  2. CEFAZOLIN SODIUM [Concomitant]
     Dosage: 2 g, Once
     Route: 042
     Dates: start: 20120727, end: 20120727
  3. CLONIDINE HYDROCHLORIDE [Concomitant]
     Dosage: 45 Microgram, Once
     Route: 042
     Dates: start: 20120727, end: 20120727
  4. DEXAMETHASONE [Concomitant]
     Dosage: 6 mg, Once
     Route: 042
     Dates: start: 20120727, end: 20120727
  5. FENTANYL [Concomitant]
     Dosage: 100 Microgram, Once
     Route: 042
     Dates: start: 20120727, end: 20120727
  6. GRANISETRON [Concomitant]
     Dosage: 1 mg, Once
     Route: 042
     Dates: start: 20120727, end: 20120727
  7. MIDAZOLAM [Concomitant]
     Dosage: 3 mg, Once
     Route: 042
     Dates: start: 20120727, end: 20120727
  8. MORPHINE [Concomitant]
     Dosage: 5.5 mg, Once
     Route: 042
     Dates: start: 20120727, end: 20120727
  9. ACETAMINOPHEN [Concomitant]
     Dosage: 1 g, Once
     Route: 042
     Dates: start: 20120727, end: 20120727
  10. PARECOXIB SODIUM [Concomitant]
     Dosage: 40 mg, Once
     Route: 042
     Dates: start: 20120727, end: 20120727
  11. PROPOFOL [Concomitant]
     Dosage: 200 mg, Unknown
     Route: 042
     Dates: start: 20120727, end: 20120727
  12. ROCURONIUM BROMIDE [Concomitant]
     Dosage: 35 mg, Once
     Route: 042
     Dates: start: 20120727, end: 20120727

REACTIONS (4)
  - Anaphylactic reaction [Recovered/Resolved]
  - Swelling face [Recovered/Resolved]
  - Hypotension [Recovered/Resolved]
  - Rash [Recovered/Resolved]
